FAERS Safety Report 5960946-X (Version None)
Quarter: 2008Q4

REPORT INFORMATION
  Report Type: 
  Country: None (occurrence: None)
  Receive Date: 20081119
  Receipt Date: 20081107
  Transmission Date: 20090506
  Serious: Yes (Hospitalization)
  Sender: FDA-Public Use
  Company Number: 200811007

PATIENT
  Age: 84 Year
  Sex: Male
  Weight: 71.2147 kg

DRUGS (8)
  1. TESTIM [Suspect]
     Indication: ERECTILE DYSFUNCTION
     Dosage: 50 MG, DAILY, TRANSDERMAL, 50 MG, DAILY, TRANSDERMAL
     Route: 062
     Dates: start: 20080201, end: 20081005
  2. TESTIM [Suspect]
     Indication: ERECTILE DYSFUNCTION
     Dosage: 50 MG, DAILY, TRANSDERMAL, 50 MG, DAILY, TRANSDERMAL
     Route: 062
     Dates: start: 20081008, end: 20081103
  3. STARLIX [Concomitant]
  4. PRAVACHOL [Concomitant]
  5. LOTREL [Concomitant]
  6. PLAVIX [Concomitant]
  7. FLOMAX [Concomitant]
  8. AVODART [Concomitant]

REACTIONS (2)
  - DRUG INEFFECTIVE FOR UNAPPROVED INDICATION [None]
  - VENOUS INSUFFICIENCY [None]
